FAERS Safety Report 5649081-8 (Version None)
Quarter: 2008Q1

REPORT INFORMATION
  Report Type: 
  Country: None (occurrence: None)
  Receive Date: 20080304
  Receipt Date: 20080221
  Transmission Date: 20080703
  Serious: Yes (Hospitalization, Other)
  Sender: FDA-Public Use
  Company Number: US-ELI_LILLY_AND_COMPANY-US200802005004

PATIENT
  Sex: Female

DRUGS (2)
  1. FORTEO [Suspect]
     Indication: OSTEOPOROSIS
     Dates: end: 20070101
  2. FORTEO [Suspect]
     Dates: start: 20080214

REACTIONS (7)
  - FALL [None]
  - HIP FRACTURE [None]
  - MEDICAL DEVICE IMPLANTATION [None]
  - OESOPHAGEAL DILATATION [None]
  - THYROID CANCER [None]
  - THYROID DISORDER [None]
  - UPPER LIMB FRACTURE [None]
